FAERS Safety Report 13642097 (Version 1)
Quarter: 2017Q2

REPORT INFORMATION
  Report Type: Spontaneous
  Country: CH (occurrence: GR)
  Receive Date: 20170612
  Receipt Date: 20170612
  Transmission Date: 20170830
  Serious: Yes (Life-Threatening, Hospitalization)
  Sender: FDA-Public Use
  Company Number: CH-LPDUSPRD-20170747

PATIENT
  Age: 77 Year
  Sex: Male

DRUGS (1)
  1. FERINJECT [Suspect]
     Active Substance: FERRIC CARBOXYMALTOSE
     Dosage: 1 GRAM
     Route: 041
     Dates: start: 20170524, end: 20170524

REACTIONS (3)
  - Postoperative fever [Unknown]
  - Haematocrit decreased [Unknown]
  - Anaphylactoid shock [Unknown]
